FAERS Safety Report 5216213-5 (Version None)
Quarter: 2007Q1

REPORT INFORMATION
  Report Type: 
  Country: None (occurrence: None)
  Receive Date: 20070123
  Receipt Date: 20070111
  Transmission Date: 20070707
  Serious: Yes (Death, Other)
  Sender: FDA-Public Use
  Company Number: US-PFIZER INC-2006140958

PATIENT
  Sex: Male
  Weight: 99 kg

DRUGS (4)
  1. DIFLUCAN [Suspect]
     Indication: CANDIDIASIS
     Dates: start: 20061105, end: 20061108
  2. VFEND [Suspect]
     Indication: CANDIDIASIS
     Route: 042
     Dates: start: 20061108, end: 20061117
  3. VFEND [Suspect]
  4. DRUG, UNSPECIFIED [Concomitant]

REACTIONS (7)
  - BLOOD CREATININE INCREASED [None]
  - CANDIDIASIS [None]
  - HYPOTENSION [None]
  - PERITONITIS BACTERIAL [None]
  - PYREXIA [None]
  - SEPSIS [None]
  - WEIGHT INCREASED [None]
